FAERS Safety Report 19682627 (Version 1)
Quarter: 2021Q3

REPORT INFORMATION
  Report Type: Spontaneous
  Country: CA (occurrence: CA)
  Receive Date: 20210810
  Receipt Date: 20210810
  Transmission Date: 20211014
  Serious: Yes (Other)
  Sender: FDA-Public Use
  Company Number: CA-LUPIN PHARMACEUTICALS INC.-2021-14241

PATIENT
  Age: 62 Year
  Sex: Female

DRUGS (4)
  1. DONEPEZIL. [Suspect]
     Active Substance: DONEPEZIL
     Indication: FRONTOTEMPORAL DEMENTIA
     Dosage: UNK
     Route: 065
  2. MEMANTINE. [Suspect]
     Active Substance: MEMANTINE
     Indication: FRONTOTEMPORAL DEMENTIA
     Dosage: UNK
     Route: 065
  3. MEMANTINE. [Suspect]
     Active Substance: MEMANTINE
     Indication: CORTICOBASAL DEGENERATION
  4. DONEPEZIL. [Suspect]
     Active Substance: DONEPEZIL
     Indication: CORTICOBASAL DEGENERATION

REACTIONS (1)
  - Drug ineffective [Unknown]
